FAERS Safety Report 24912367 (Version 1)
Quarter: 2025Q1

REPORT INFORMATION
  Report Type: Spontaneous
  Country: US (occurrence: US)
  Receive Date: 20250131
  Receipt Date: 20250131
  Transmission Date: 20250409
  Serious: No
  Sender: MYLAN
  Company Number: US-MYLANLABS-2025M1007078

PATIENT
  Sex: Male

DRUGS (2)
  1. METHYLPHENIDATE [Suspect]
     Active Substance: METHYLPHENIDATE
     Indication: Product used for unknown indication
     Route: 065
  2. DAYTRANA [Concomitant]
     Active Substance: METHYLPHENIDATE
     Dosage: UNK, QD (12-14 HOURS EVERY DAY)
     Route: 062

REACTIONS (2)
  - Drug ineffective [Unknown]
  - Off label use [Unknown]
